FAERS Safety Report 8333533-6 (Version None)
Quarter: 2012Q1

REPORT INFORMATION
  Report Type: 
  Country: None (occurrence: None)
  Receive Date: 20120329
  Receipt Date: 20090710
  Transmission Date: 20120608
  Serious: Yes (Other)
  Sender: FDA-Public Use
  Company Number: PHEH2009US07602

PATIENT
  Age: 85 Year
  Sex: Female

DRUGS (3)
  1. PAPAZOL (BENDAZOL HYDROCHLORIDE, PAPAVERINE HYDROCHLORIDE) [Concomitant]
  2. EXELON [Suspect]
     Dosage: 1.5 MG, UNK
  3. AMIODARONE HCL [Concomitant]

REACTIONS (5)
  - INSOMNIA [None]
  - DEMENTIA ALZHEIMER'S TYPE [None]
  - BLOOD PRESSURE INADEQUATELY CONTROLLED [None]
  - HALLUCINATION, VISUAL [None]
  - SICK SINUS SYNDROME [None]
